FAERS Safety Report 7005712-1 (Version None)
Quarter: 2010Q3

REPORT INFORMATION
  Report Type: 
  Country: None (occurrence: None)
  Receive Date: 20100921
  Receipt Date: 20100915
  Transmission Date: 20110219
  Serious: Yes (Life-Threatening, Hospitalization)
  Sender: FDA-Public Use
  Company Number: JP-MERCK-1008USA03521

PATIENT
  Age: 60 Year
  Sex: Male

DRUGS (3)
  1. JANUVIA [Suspect]
     Indication: TYPE 2 DIABETES MELLITUS
     Route: 048
     Dates: start: 20100603, end: 20100628
  2. BLOPRESS [Concomitant]
     Route: 065
     Dates: start: 20100407
  3. NORVASC [Concomitant]
     Route: 065
     Dates: start: 20100407

REACTIONS (1)
  - ACUTE MYELOID LEUKAEMIA [None]
